FAERS Safety Report 18176470 (Version 1)
Quarter: 2020Q3

REPORT INFORMATION
  Report Type: Spontaneous
  Country: KR (occurrence: KR)
  Receive Date: 20200820
  Receipt Date: 20200820
  Transmission Date: 20201103
  Serious: Yes (Other)
  Sender: FDA-Public Use
  Company Number: KR-BAYER-2020-169038

PATIENT
  Age: 57 Year
  Sex: Male

DRUGS (1)
  1. NEXAVAR [Suspect]
     Active Substance: SORAFENIB
     Indication: HEPATOCELLULAR CARCINOMA
     Dosage: 400 MG, BID, FOR 6 WEEKS
     Route: 048

REACTIONS (5)
  - Drug ineffective [None]
  - Protein induced by vitamin K absence or antagonist II increased [Recovered/Resolved]
  - Alpha 1 foetoprotein increased [Recovered/Resolved]
  - Metastases to lung [Recovered/Resolved]
  - Tumour thrombosis [Recovered/Resolved]
